FAERS Safety Report 5207007-5 (Version None)
Quarter: 2007Q1

REPORT INFORMATION
  Report Type: 
  Country: None (occurrence: None)
  Receive Date: 20070110
  Receipt Date: 20070104
  Transmission Date: 20070707
  Serious: Yes (Hospitalization)
  Sender: FDA-Public Use
  Company Number: HQWYE614105JAN07

PATIENT
  Sex: Male

DRUGS (1)
  1. PRIMATENE MIST [Suspect]
     Indication: DYSPNOEA
     Dosage: TWO PUFFS, INHALATION
     Route: 055
     Dates: start: 20061223

REACTIONS (3)
  - AMPHETAMINES POSITIVE [None]
  - CARDIAC ARREST [None]
  - DRUG SCREEN FALSE POSITIVE [None]
